FAERS Safety Report 8554127-3 (Version None)
Quarter: 2012Q3

REPORT INFORMATION
  Report Type: 
  Country: None (occurrence: None)
  Receive Date: 20120731
  Receipt Date: 20120724
  Transmission Date: 20120928
  Serious: Yes (Other)
  Sender: FDA-Public Use
  Company Number: PHHY2012JP051386

PATIENT
  Age: 33 Year
  Sex: Female

DRUGS (2)
  1. DICLOFENAC SODIUM [Suspect]
     Indication: OROPHARYNGEAL PAIN
  2. CELECOXIB [Suspect]
     Route: 048

REACTIONS (11)
  - MENINGITIS ASEPTIC [None]
  - ANTINUCLEAR ANTIBODY [None]
  - C-REACTIVE PROTEIN INCREASED [None]
  - PLEURISY [None]
  - EPIGASTRIC DISCOMFORT [None]
  - HYPOKINESIA [None]
  - LEUKOPENIA [None]
  - HEADACHE [None]
  - MIXED CONNECTIVE TISSUE DISEASE [None]
  - PANCYTOPENIA [None]
  - VOMITING [None]
